FAERS Safety Report 19967033 (Version 1)
Quarter: 2021Q4

REPORT INFORMATION
  Report Type: Spontaneous
  Country: IN (occurrence: IN)
  Receive Date: 20211019
  Receipt Date: 20211019
  Transmission Date: 20220304
  Serious: Yes (Hospitalization, Other)
  Sender: FDA-Public Use
  Company Number: IN-SUN PHARMACEUTICAL INDUSTRIES LTD-2021R1-301584

PATIENT
  Age: 8 Year
  Sex: Female
  Weight: 22 kg

DRUGS (1)
  1. PREGABALIN [Suspect]
     Active Substance: PREGABALIN
     Indication: Product used for unknown indication
     Dosage: 15 DOSAGE FORM(51 MG/KG)
     Route: 048

REACTIONS (12)
  - Encephalopathy [Recovered/Resolved]
  - Toxicity to various agents [Unknown]
  - Accidental exposure to product [Unknown]
  - Vomiting [Unknown]
  - Altered state of consciousness [Recovered/Resolved]
  - Somnolence [Unknown]
  - Hypoglycaemia [Unknown]
  - Sinus tachycardia [Unknown]
  - Agitation [Unknown]
  - Aggression [Unknown]
  - Nausea [Unknown]
  - Abdominal pain [Unknown]
